FAERS Safety Report 18114638 (Version 1)
Quarter: 2020Q3

REPORT INFORMATION
  Report Type: Other
  Country: PT (occurrence: PT)
  Receive Date: 20200805
  Receipt Date: 20200805
  Transmission Date: 20201103
  Serious: Yes (Other)
  Sender: FDA-Public Use
  Company Number: PT-ASPEN-GLO2020PT007485

PATIENT
  Age: 66 Year
  Sex: Male

DRUGS (7)
  1. THALIDOMIDE [Suspect]
     Active Substance: THALIDOMIDE
     Indication: PLASMA CELL MYELOMA
     Dosage: 100 MG, QD
     Route: 048
  2. DEXAMETHASONE. [Suspect]
     Active Substance: DEXAMETHASONE
     Indication: PLASMA CELL MYELOMA
     Dosage: 40 MG FOR 4 CONSECUTIVE DAYS EVERY MONTH
     Route: 048
  3. ERYTHROPOETIN [Suspect]
     Active Substance: ERYTHROPOIETIN
     Indication: PLASMA CELL MYELOMA
     Dosage: 30000 U, QD, EVERY MONTH
     Route: 058
  4. ZOLEDRONIC ACID [Suspect]
     Active Substance: ZOLEDRONIC ACID
     Indication: PLASMA CELL MYELOMA
     Dosage: 4 MG OVER 15 MINUTES PER MONTH
     Route: 042
  5. CYCLOPHOSPHAMIDE. [Suspect]
     Active Substance: CYCLOPHOSPHAMIDE
     Indication: PLASMA CELL MYELOMA
     Dosage: 1 MG, QD, EVERY MONTH
     Route: 042
  6. CYCLOPHOSPHAMIDE. [Suspect]
     Active Substance: CYCLOPHOSPHAMIDE
     Dosage: MONTHLY
     Route: 042
  7. FILGRASTIM [Suspect]
     Active Substance: FILGRASTIM
     Indication: PLASMA CELL MYELOMA
     Dosage: 30000000 U, QD, EVERY MONTH
     Route: 058

REACTIONS (5)
  - Tooth abscess [Unknown]
  - Actinomycosis [Unknown]
  - Impaired healing [Unknown]
  - Osteonecrosis of jaw [Unknown]
  - Osteomyelitis [Unknown]

NARRATIVE: CASE EVENT DATE: 200403
